APPROVED DRUG PRODUCT: NAROPIN
Active Ingredient: ROPIVACAINE HYDROCHLORIDE
Strength: 400MG/200ML (2MG/ML)
Dosage Form/Route: SOLUTION;INJECTION
Application: N020533 | Product #007 | TE Code: AP
Applicant: FRESENIUS KABI USA LLC
Approved: Sep 24, 1996 | RLD: Yes | RS: No | Type: RX

PATENTS:
Patent 7857802 | Expires: Nov 28, 2026